FAERS Safety Report 18206871 (Version 1)
Quarter: 2020Q3

REPORT INFORMATION
  Report Type: Spontaneous
  Country: US (occurrence: US)
  Receive Date: 20200827
  Receipt Date: 20200827
  Transmission Date: 20201103
  Serious: Yes (Other)
  Sender: FDA-Public Use
  Company Number: None

PATIENT
  Age: 32 Year
  Sex: Female
  Weight: 56.25 kg

DRUGS (1)
  1. ZOLOFT [Suspect]
     Active Substance: SERTRALINE HYDROCHLORIDE
     Indication: ANXIETY
     Dosage: ?          QUANTITY:1 TABLET(S);?
     Route: 048
     Dates: start: 20200625, end: 20200826

REACTIONS (5)
  - Neonatal disorder [None]
  - Maternal drugs affecting foetus [None]
  - Muscle spasms [None]
  - Exposure during pregnancy [None]
  - Tremor neonatal [None]

NARRATIVE: CASE EVENT DATE: 20200826
